FAERS Safety Report 10039670 (Version 1)
Quarter: 2014Q1

REPORT INFORMATION
  Report Type: Spontaneous
  Country: US (occurrence: US)
  Receive Date: 20140326
  Receipt Date: 20140326
  Transmission Date: 20141002
  Serious: No
  Sender: FDA-Public Use
  Company Number: US-JNJFOC-20140301262

PATIENT
  Age: 70 Year
  Sex: Female
  Weight: 63.5 kg

DRUGS (5)
  1. INVEGA SUSTENNA [Suspect]
     Indication: DELUSIONAL DISORDER, UNSPECIFIED TYPE
     Route: 030
     Dates: start: 201401
  2. PROGRAF [Concomitant]
     Indication: LIVER TRANSPLANT
     Route: 065
     Dates: start: 2003
  3. EPIVIR [Concomitant]
     Indication: LIVER TRANSPLANT
     Route: 065
     Dates: start: 2003
  4. URSODIOL [Concomitant]
     Indication: LIVER DISORDER
     Route: 065
     Dates: start: 2011
  5. LEXAPRO [Concomitant]
     Indication: ANXIETY
     Route: 065
     Dates: start: 201301

REACTIONS (6)
  - Feeling abnormal [Not Recovered/Not Resolved]
  - Memory impairment [Not Recovered/Not Resolved]
  - Anxiety [Not Recovered/Not Resolved]
  - Gastroenteritis viral [Not Recovered/Not Resolved]
  - Fatigue [Not Recovered/Not Resolved]
  - Tremor [Not Recovered/Not Resolved]
